FAERS Safety Report 14126615 (Version 1)
Quarter: 2017Q4

REPORT INFORMATION
  Report Type: Report from Study
  Country: US (occurrence: US)
  Receive Date: 20171025
  Receipt Date: 20171025
  Transmission Date: 20180321
  Serious: Yes (Death, Other)
  Sender: FDA-Public Use
  Company Number: US-GILEAD-2017-0301223

PATIENT
  Age: 84 Year
  Sex: Female

DRUGS (1)
  1. AMBRISENTAN [Suspect]
     Active Substance: AMBRISENTAN
     Indication: PULMONARY HYPERTENSION
     Dosage: 5 MG, QD
     Route: 065
     Dates: start: 20120710

REACTIONS (6)
  - Death [Fatal]
  - Gastrointestinal haemorrhage [Unknown]
  - Renal failure [Unknown]
  - Pulmonary arterial hypertension [Unknown]
  - Right ventricular failure [Unknown]
  - Intestinal mass [Unknown]
